FAERS Safety Report 10103341 (Version 1)
Quarter: 2014Q2

REPORT INFORMATION
  Report Type: Spontaneous
  Country: US (occurrence: US)
  Receive Date: 20140424
  Receipt Date: 20140424
  Transmission Date: 20141212
  Serious: Yes (Other)
  Sender: FDA-Public Use
  Company Number: US-PFIZER INC-2014110297

PATIENT
  Sex: Male

DRUGS (2)
  1. GLIPIZIDE [Suspect]
     Dosage: 10 MG, 2X/DAY
  2. JANUMET [Suspect]
     Dosage: 1 DF, 2X/DAY [50 MGS-1000 MGS ONE TABLET TWICE A DAY]

REACTIONS (2)
  - Glycosylated haemoglobin increased [Unknown]
  - Blood glucose increased [Unknown]
